FAERS Safety Report 17324845 (Version 1)
Quarter: 2020Q1

REPORT INFORMATION
  Report Type: Spontaneous
  Country: US (occurrence: US)
  Receive Date: 20200124
  Receipt Date: 20200124
  Transmission Date: 20200409
  Serious: No
  Sender: FDA-Public Use
  Company Number: None

PATIENT
  Age: 62 Year
  Sex: Male
  Weight: 97.2 kg

DRUGS (1)
  1. INDOMETHACIN 25 MG CAP GLEN [Suspect]
     Active Substance: INDOMETHACIN
     Indication: GOUT
     Dosage: ?          QUANTITY:30 CAPSULE(S);?
     Route: 048
     Dates: start: 20191212, end: 20191221

REACTIONS (4)
  - Alopecia [None]
  - Drug ineffective [None]
  - Skin disorder [None]
  - Skin discolouration [None]

NARRATIVE: CASE EVENT DATE: 20200124
